FAERS Safety Report 23036821 (Version 1)
Quarter: 2023Q4

REPORT INFORMATION
  Report Type: Spontaneous
  Country: US (occurrence: US)
  Receive Date: 20231006
  Receipt Date: 20231006
  Transmission Date: 20240109
  Serious: Yes (Other)
  Sender: FDA-Public Use
  Company Number: US-CHEPLA-2023012549

PATIENT
  Age: 40 Year
  Sex: Male

DRUGS (5)
  1. VALGANCICLOVIR [Suspect]
     Active Substance: VALGANCICLOVIR
     Indication: Cytomegalovirus infection
     Dosage: FOR 20 DAYS?DAILY DOSE: 900 MILLIGRAM
     Route: 048
  2. GANCICLOVIR [Concomitant]
     Active Substance: GANCICLOVIR
     Indication: Cytomegalovirus infection
     Dosage: BID?DAILY DOSE: 600 MILLIGRAM
  3. FIDAXOMICIN [Concomitant]
     Active Substance: FIDAXOMICIN
     Indication: Clostridium difficile infection
     Dosage: BID, FOR 10 DAYS?DAILY DOSE: 400 MILLIGRAM
  4. AMPHOTERICIN B [Concomitant]
     Active Substance: AMPHOTERICIN B
     Indication: Mucormycosis
     Dosage: DAILY DOSE: 290 MILLIGRAM
  5. ISAVUCONAZOLE [Concomitant]
     Active Substance: ISAVUCONAZOLE
     Indication: Mucormycosis
     Dosage: FOR 6 MONTHS?DAILY DOSE: 372 MILLIGRAM
     Route: 048

REACTIONS (2)
  - Small intestinal obstruction [Unknown]
  - Product use in unapproved indication [Not Recovered/Not Resolved]
